FAERS Safety Report 22286685 (Version 1)
Quarter: 2023Q2

REPORT INFORMATION
  Report Type: Report from Study
  Country: US (occurrence: US)
  Receive Date: 20230505
  Receipt Date: 20230505
  Transmission Date: 20230721
  Serious: Yes (Other)
  Sender: FDA-Public Use
  Company Number: US-ABBVIE-4753379

PATIENT
  Sex: Male

DRUGS (5)
  1. VENCLEXTA [Suspect]
     Active Substance: VENETOCLAX
     Indication: Myelosuppression
     Dosage: 5 TABLETS ON DAY 3; DISCARD REMAINING TABLETS?FORM STRENGTH: 10 MG
     Route: 048
  2. VENCLEXTA [Suspect]
     Active Substance: VENETOCLAX
     Indication: Myelosuppression
     Dosage: 2 TABLETS ON DAY 2?FORM STRENGTH: 10 MG
     Route: 048
  3. VENCLEXTA [Suspect]
     Active Substance: VENETOCLAX
     Indication: Myelosuppression
     Dosage: TAKE 1 TABLET BY MOUTH ON DAY 1?FORM STRENGTH: 10 MG
     Route: 048
  4. VENCLEXTA [Suspect]
     Active Substance: VENETOCLAX
     Indication: Myelosuppression
     Dosage: TAKE 1 TABLET BY MOUTH DAILY, BEGIN TAKING ON DAY 4?FORM STRENGTH: 100 MG
     Route: 048
  5. VENCLEXTA [Suspect]
     Active Substance: VENETOCLAX
     Indication: Myelosuppression
     Route: 048

REACTIONS (4)
  - Leukaemia [Unknown]
  - Off label use [Unknown]
  - Neoplasm malignant [Unknown]
  - Oedema [Unknown]
